FAERS Safety Report 7718655-2 (Version None)
Quarter: 2011Q3

REPORT INFORMATION
  Report Type: 
  Country: None (occurrence: None)
  Receive Date: 20110830
  Receipt Date: 20110826
  Transmission Date: 20111222
  Serious: Yes (Life-Threatening, Hospitalization)
  Sender: FDA-Public Use
  Company Number: US-ASTRAZENECA-2011SE51357

PATIENT
  Age: 22 Year
  Sex: Female

DRUGS (3)
  1. METHADONE HCL [Concomitant]
  2. PROZAC [Concomitant]
  3. SEROQUEL XR [Suspect]
     Route: 048
     Dates: start: 20110816

REACTIONS (1)
  - CARDIAC ARREST [None]
